FAERS Safety Report 16038970 (Version 3)
Quarter: 2019Q1

REPORT INFORMATION
  Report Type: Spontaneous
  Country: GB (occurrence: GB)
  Receive Date: 20190306
  Receipt Date: 20190327
  Transmission Date: 20190418
  Serious: Yes (Other)
  Sender: FDA-Public Use
  Company Number: IN-009507513-1903GBR001529

PATIENT
  Sex: Male

DRUGS (1)
  1. CUBICIN [Suspect]
     Active Substance: DAPTOMYCIN
     Dosage: UNK
     Dates: start: 201901

REACTIONS (9)
  - Muscle disorder [Unknown]
  - Eosinophilic pneumonia [Unknown]
  - Pulmonary eosinophilia [Unknown]
  - Bone marrow disorder [Unknown]
  - Neuropathy peripheral [Unknown]
  - Hypersensitivity [Unknown]
  - Pathogen resistance [Unknown]
  - Coagulopathy [Unknown]
  - Liver disorder [Unknown]

NARRATIVE: CASE EVENT DATE: 201901
